FAERS Safety Report 9996305 (Version 1)
Quarter: 2014Q1

REPORT INFORMATION
  Report Type: Spontaneous
  Country: US (occurrence: None)
  Receive Date: 20140310
  Receipt Date: 20140310
  Transmission Date: 20141002
  Serious: Yes (Other)
  Sender: FDA-Public Use
  Company Number: None

PATIENT
  Age: 52 Year
  Sex: Female
  Weight: 63.5 kg

DRUGS (1)
  1. PREVACID [Suspect]
     Indication: ABDOMINAL PAIN UPPER
     Dates: start: 20140305, end: 20140305

REACTIONS (7)
  - Dizziness [None]
  - Presyncope [None]
  - Vision blurred [None]
  - Photopsia [None]
  - Euphoric mood [None]
  - Feeling abnormal [None]
  - Sedation [None]
